FAERS Safety Report 8533397-1 (Version None)
Quarter: 2012Q3

REPORT INFORMATION
  Report Type: 
  Country: None (occurrence: None)
  Receive Date: 20120724
  Receipt Date: 20120719
  Transmission Date: 20120928
  Serious: Yes (Life-Threatening, Disabling, Other)
  Sender: FDA-Public Use
  Company Number: PHHY2012FR025283

PATIENT
  Age: 60 Year
  Sex: Male

DRUGS (1)
  1. TASIGNA [Suspect]
     Indication: CHRONIC MYELOID LEUKAEMIA
     Dosage: 600 MG, QD
     Route: 048
     Dates: start: 20070903

REACTIONS (12)
  - CORONARY ARTERY STENOSIS [None]
  - ISCHAEMIA [None]
  - ARTERIAL OCCLUSIVE DISEASE [None]
  - INTERMITTENT CLAUDICATION [None]
  - PAIN IN EXTREMITY [None]
  - BLOOD PRESSURE DECREASED [None]
  - MYOCARDIAL INFARCTION [None]
  - CHEST PAIN [None]
  - LOW DENSITY LIPOPROTEIN INCREASED [None]
  - ANGINA PECTORIS [None]
  - CHEST DISCOMFORT [None]
  - ELECTROCARDIOGRAM REPOLARISATION ABNORMALITY [None]
